FAERS Safety Report 8905385 (Version 1)
Quarter: 2012Q4

REPORT INFORMATION
  Report Type: 
  Country: FR (occurrence: FR)
  Receive Date: 20121111
  Receipt Date: 20121111
  Transmission Date: 20130627
  Serious: Yes (Death, Other)
  Sender: FDA-Public Use
  Company Number: PHHY2012FR103432

PATIENT
  Sex: Male
  Weight: 76 kg

DRUGS (9)
  1. TASIGNA [Suspect]
     Indication: CHRONIC MYELOID LEUKAEMIA
     Dosage: 800 mg, daily
     Route: 048
     Dates: start: 20081114, end: 20110413
  2. LIPID LOWERING AGENTS [Concomitant]
  3. ANTIHYPERTENSIVES [Concomitant]
  4. TAHOR [Concomitant]
     Indication: DYSLIPIDAEMIA
     Dosage: 40 mg, daily
     Route: 048
     Dates: start: 2004, end: 20110415
  5. PLAVIX [Concomitant]
     Indication: MYOCARDIAL INFARCTION
     Dosage: 1 DF, daily
     Route: 048
     Dates: start: 2004, end: 20110415
  6. KARDEGIC [Concomitant]
     Indication: MYOCARDIAL INFARCTION
     Dosage: 75 mg, daily
     Route: 048
     Dates: start: 2004, end: 20110415
  7. SELOKEN [Concomitant]
     Indication: HYPERTENSION
     Dosage: 0.5 DF, BID
     Route: 048
     Dates: start: 2004, end: 20110415
  8. COVERSYL                                /BEL/ [Concomitant]
     Indication: MYOCARDIAL INFARCTION
     Dosage: 8 mg, daily
     Route: 048
     Dates: start: 2004, end: 20110415
  9. PERMIXON [Concomitant]
     Indication: PROSTATE CANCER
     Dosage: 1 DF, daily
     Route: 048
     Dates: start: 2004, end: 20110415

REACTIONS (6)
  - Sepsis [Fatal]
  - Peripheral arterial occlusive disease [Unknown]
  - Peripheral artery stenosis [Unknown]
  - Peripheral artery thrombosis [Unknown]
  - Arteriosclerosis [Unknown]
  - Musculoskeletal pain [Unknown]
